FAERS Safety Report 7065088-0 (Version None)
Quarter: 2010Q4

REPORT INFORMATION
  Report Type: 
  Country: None (occurrence: None)
  Receive Date: 20101027
  Receipt Date: 19901002
  Transmission Date: 20110411
  Serious: Yes (Death, Life-Threatening)
  Sender: FDA-Public Use
  Company Number: US-ROCHE-900201145002

PATIENT
  Age: 77 Year
  Sex: Female
  Weight: 62.6 kg

DRUGS (6)
  1. VERSED [Suspect]
     Route: 042
     Dates: start: 19900927, end: 19900927
  2. NITROGLYCERIN [Concomitant]
     Route: 065
  3. DILTIAZEM [Concomitant]
     Route: 065
  4. HEPARIN [Concomitant]
     Route: 065
  5. ATROPINE [Concomitant]
     Route: 065
  6. INDERAL [Concomitant]
     Route: 065

REACTIONS (3)
  - DEATH [None]
  - LETHARGY [None]
  - RESPIRATORY DEPRESSION [None]
